FAERS Safety Report 17163829 (Version 4)
Quarter: 2020Q1

REPORT INFORMATION
  Report Type: Report from Study
  Country: US (occurrence: US)
  Receive Date: 20191217
  Receipt Date: 20200121
  Transmission Date: 20200409
  Serious: Yes (Other)
  Sender: FDA-Public Use
  Company Number: NVSC2019US070916

PATIENT
  Age: 67 Year
  Sex: Male
  Weight: 86.17 kg

DRUGS (1)
  1. ENTRESTO [Suspect]
     Active Substance: SACUBITRIL\VALSARTAN
     Indication: CARDIAC FAILURE CHRONIC
     Dosage: 1 DF (SACUBITRIL 24MG AND VALSARTAN 26MG)
     Route: 065

REACTIONS (5)
  - Blood glucose increased [Unknown]
  - Weight decreased [Unknown]
  - Memory impairment [Unknown]
  - Dysarthria [Unknown]
  - Chills [Unknown]

NARRATIVE: CASE EVENT DATE: 20191231
